FAERS Safety Report 20912105 (Version 1)
Quarter: 2022Q2

REPORT INFORMATION
  Report Type: Other
  Country: US (occurrence: US)
  Receive Date: 20220603
  Receipt Date: 20220603
  Transmission Date: 20220720
  Serious: Yes (Other)
  Sender: FDA-Public Use
  Company Number: US-TOPROL-2022000165

PATIENT
  Age: 25 Year
  Sex: Male
  Weight: 99.3 kg

DRUGS (3)
  1. METOPROLOL SUCCINATE [Suspect]
     Active Substance: METOPROLOL SUCCINATE
     Indication: Cardiac arrest
     Route: 065
  2. METOPROLOL SUCCINATE [Suspect]
     Active Substance: METOPROLOL SUCCINATE
     Indication: Cardiac arrest
     Route: 065
  3. APIXABAN [Concomitant]
     Active Substance: APIXABAN
     Indication: Product used for unknown indication

REACTIONS (6)
  - Dyspnoea [Unknown]
  - Syncope [Unknown]
  - Cardioversion [Unknown]
  - Electrocardiogram QT prolonged [Unknown]
  - Product use issue [Unknown]
  - Product use in unapproved indication [Unknown]
